FAERS Safety Report 9432956 (Version 1)
Quarter: 2013Q3

REPORT INFORMATION
  Report Type: Spontaneous
  Country: US (occurrence: US)
  Receive Date: 20130731
  Receipt Date: 20130731
  Transmission Date: 20140515
  Serious: No
  Sender: FDA-Public Use
  Company Number: US-PFIZER INC-2013221024

PATIENT
  Age: 54 Year
  Sex: Female

DRUGS (10)
  1. LIPITOR [Suspect]
     Dosage: UNK
  2. AZITHROMYCIN [Suspect]
     Dosage: UNK
  3. CIPROFLOXACIN [Suspect]
     Dosage: UNK
  4. CLARITHROMYCIN [Suspect]
     Dosage: UNK
  5. LISINOPRIL [Suspect]
     Dosage: UNK
  6. LOSARTAN [Suspect]
     Dosage: UNK
  7. BACTRIM [Suspect]
     Dosage: UNK
  8. ZOCOR [Suspect]
     Dosage: UNK
  9. ACTOPLUS MET [Suspect]
     Dosage: UNK
  10. SULFAMETHOXAZOLE [Suspect]
     Dosage: UNK

REACTIONS (1)
  - Drug hypersensitivity [Unknown]
